FAERS Safety Report 5999954-1 (Version None)
Quarter: 2008Q4

REPORT INFORMATION
  Report Type: 
  Country: None (occurrence: None)
  Receive Date: 20081215
  Receipt Date: 20081210
  Transmission Date: 20090506
  Serious: Yes (Life-Threatening)
  Sender: FDA-Public Use
  Company Number: PHHY2008GB31293

PATIENT
  Sex: Female
  Weight: 41.9 kg

DRUGS (3)
  1. PIMECROLIMUS [Suspect]
     Indication: DERMATITIS ATOPIC
     Dosage: UNK
     Dates: start: 20041203
  2. EMOLLIENTS AND PROTECTIVES [Concomitant]
  3. STEROIDS NOS [Concomitant]
     Indication: ECZEMA

REACTIONS (1)
  - RHABDOMYOSARCOMA [None]
